FAERS Safety Report 6166982-5 (Version None)
Quarter: 2009Q2

REPORT INFORMATION
  Report Type: 
  Country: None (occurrence: None)
  Receive Date: 20090422
  Receipt Date: 20090407
  Transmission Date: 20091009
  Serious: Yes (Other)
  Sender: FDA-Public Use
  Company Number: 1000005043

PATIENT
  Age: 81 Year
  Sex: Female
  Weight: 55 kg

DRUGS (8)
  1. MEMANTINE HCL [Suspect]
     Indication: ABNORMAL BEHAVIOUR
     Dosage: ORAL
     Route: 048
     Dates: start: 20080801, end: 20080801
  2. MEMANTINE HCL [Suspect]
     Indication: DEMENTIA ALZHEIMER'S TYPE
     Dosage: ORAL
     Route: 048
     Dates: start: 20080801, end: 20080801
  3. REMINYL [Concomitant]
  4. KARDEGIC [Concomitant]
  5. VASTAREL [Concomitant]
  6. ESIDRIX [Concomitant]
  7. EXFORGE [Concomitant]
  8. DEROXAT [Concomitant]

REACTIONS (3)
  - AGGRESSION [None]
  - DYSPHONIA [None]
  - PSYCHOTIC DISORDER [None]
